FAERS Safety Report 5192423-0 (Version None)
Quarter: 2006Q4

REPORT INFORMATION
  Report Type: 
  Country: None (occurrence: None)
  Receive Date: 20061220
  Receipt Date: 20061211
  Transmission Date: 20070319
  Serious: Yes (Hospitalization, Other)
  Sender: FDA-Public Use
  Company Number: 2006133003

PATIENT
  Sex: Male
  Weight: 81.6475 kg

DRUGS (6)
  1. TIKOSYN [Suspect]
     Indication: ATRIAL FIBRILLATION
     Dosage: 500 MCG (250 MCG, 2 IN 1 D)
     Dates: start: 20060501
  2. DILTIAZEM HCL [Concomitant]
  3. METOPROLOL SUCCINATE [Concomitant]
  4. COUMADIN [Concomitant]
  5. TUMS (CALCIUM CARBONATE) [Concomitant]
  6. AMBIEN [Concomitant]

REACTIONS (3)
  - ATRIAL FIBRILLATION [None]
  - DISEASE RECURRENCE [None]
  - PANCREATITIS [None]
